FAERS Safety Report 9301512 (Version 1)
Quarter: 2013Q2

REPORT INFORMATION
  Report Type: Spontaneous
  Country: BR (occurrence: BR)
  Receive Date: 20130521
  Receipt Date: 20130521
  Transmission Date: 20140414
  Serious: Yes (Other)
  Sender: FDA-Public Use
  Company Number: CHNY2013BR001153

PATIENT
  Age: 48 Year
  Sex: Male

DRUGS (2)
  1. TRIMEDAL [Suspect]
     Indication: INFLUENZA
     Dosage: 500 MG, Q12H
     Route: 048
     Dates: start: 20130514, end: 20130515
  2. DIOVAN HCT [Suspect]
     Indication: HYPERTENSION
     Dosage: 1 DF, QD
     Route: 048

REACTIONS (7)
  - Syncope [Recovered/Resolved]
  - Loss of consciousness [Recovered/Resolved]
  - Malaise [Recovered/Resolved]
  - Diarrhoea [Recovered/Resolved]
  - Fatigue [Recovered/Resolved]
  - Cold sweat [Recovered/Resolved]
  - Inappropriate schedule of drug administration [Unknown]
